FAERS Safety Report 7672059-X (Version None)
Quarter: 2011Q3

REPORT INFORMATION
  Report Type: 
  Country: None (occurrence: None)
  Receive Date: 20110809
  Receipt Date: 20110729
  Transmission Date: 20111222
  Serious: Yes (Other)
  Sender: FDA-Public Use
  Company Number: PHHY2011DE68460

PATIENT
  Age: 5 Year
  Sex: Female

DRUGS (5)
  1. EVEROLIMUS [Suspect]
  2. CIPROFLAXACIN [Concomitant]
  3. TACROLIMUS [Concomitant]
  4. IMMUNOGLOBULINS [Concomitant]
     Route: 042
  5. PREDNISONE [Concomitant]

REACTIONS (5)
  - RENAL FAILURE CHRONIC [None]
  - GLOMERULAR FILTRATION RATE DECREASED [None]
  - POLYOMAVIRUS-ASSOCIATED NEPHROPATHY [None]
  - VIRAEMIA [None]
  - RENAL IMPAIRMENT [None]
